FAERS Safety Report 5443603-8 (Version None)
Quarter: 2007Q3

REPORT INFORMATION
  Report Type: 
  Country: None (occurrence: None)
  Receive Date: 20070905
  Receipt Date: 20070831
  Transmission Date: 20080115
  Serious: Yes (Hospitalization, Other)
  Sender: FDA-Public Use
  Company Number: GB-JNJFOC-20070606659

PATIENT
  Age: 14 Year
  Sex: Male
  Weight: 34 kg

DRUGS (5)
  1. INFLIXIMAB [Suspect]
     Indication: CROHN'S DISEASE
     Route: 042
  2. IMURAN [Suspect]
     Indication: CROHN'S DISEASE
     Route: 048
  3. SOLU-CORTEF [Suspect]
     Indication: DRUG USE FOR UNKNOWN INDICATION
  4. HYDROCORTISONE [Concomitant]
     Indication: CROHN'S DISEASE
     Route: 042
  5. OMEPRAZOLE [Concomitant]
     Indication: CROHN'S DISEASE
     Route: 048

REACTIONS (3)
  - CROHN'S DISEASE [None]
  - GRAND MAL CONVULSION [None]
  - REVERSIBLE POSTERIOR LEUKOENCEPHALOPATHY SYNDROME [None]
